FAERS Safety Report 10368326 (Version 1)
Quarter: 2014Q3

REPORT INFORMATION
  Report Type: Spontaneous
  Country: US (occurrence: US)
  Receive Date: 20140807
  Receipt Date: 20140807
  Transmission Date: 20150326
  Serious: No
  Sender: FDA-Public Use
  Company Number: US-PFIZER INC-2014219005

PATIENT
  Age: 41 Year
  Sex: Female
  Weight: 65.76 kg

DRUGS (1)
  1. NEURONTIN [Suspect]
     Active Substance: GABAPENTIN
     Indication: FIBROMYALGIA
     Dosage: 800 MG, 3X/DAY
     Dates: start: 2009, end: 2012

REACTIONS (1)
  - Amnesia [Not Recovered/Not Resolved]
